FAERS Safety Report 23203966 (Version 1)
Quarter: 2023Q4

REPORT INFORMATION
  Report Type: Spontaneous
  Country: JP (occurrence: JP)
  Receive Date: 20231120
  Receipt Date: 20231120
  Transmission Date: 20240110
  Serious: No
  Sender: FDA-Public Use
  Company Number: JP-ALKEM LABORATORIES LIMITED-JP-ALKEM-2022-12133

PATIENT
  Age: 61 Year
  Sex: Male

DRUGS (6)
  1. CEFTRIAXONE [Suspect]
     Active Substance: CEFTRIAXONE\CEFTRIAXONE SODIUM
     Indication: Infection
     Dosage: UNK
     Route: 065
  2. MINOCYCLINE [Suspect]
     Active Substance: MINOCYCLINE HYDROCHLORIDE
     Indication: Infection
     Dosage: 200 MILLIGRAM, QD
     Route: 042
  3. MEROPENEM [Concomitant]
     Active Substance: MEROPENEM
     Indication: Meningitis bacterial
     Dosage: UNK
     Route: 042
  4. RISPERIDONE [Concomitant]
     Active Substance: RISPERIDONE
     Indication: Hypomania
     Dosage: UNK
     Route: 065
  5. VALPROATE SODIUM [Concomitant]
     Active Substance: VALPROATE SODIUM
     Indication: Hypomania
     Dosage: UNK
     Route: 065
  6. VANCOMYCIN [Concomitant]
     Active Substance: VANCOMYCIN
     Indication: Meningitis bacterial
     Dosage: UNK
     Route: 042

REACTIONS (1)
  - Drug ineffective [Unknown]
